FAERS Safety Report 7116869-6 (Version None)
Quarter: 2010Q4

REPORT INFORMATION
  Report Type: 
  Country: None (occurrence: None)
  Receive Date: 20101122
  Receipt Date: 20101111
  Transmission Date: 20110411
  Serious: Yes (Hospitalization, Disabling, Other)
  Sender: FDA-Public Use
  Company Number: US-MERCK-0903USA01781

PATIENT
  Age: 77 Year
  Sex: Female
  Weight: 53 kg

DRUGS (9)
  1. FOSAMAX [Suspect]
     Indication: OSTEOPOROSIS
     Route: 048
     Dates: start: 19970101
  2. FOSAMAX [Suspect]
     Route: 048
     Dates: start: 20010327, end: 20060501
  3. ALPRAZOLAM [Concomitant]
     Indication: SLEEP DISORDER
     Route: 065
     Dates: start: 19850101
  4. FUROSEMIDE [Concomitant]
     Indication: OEDEMA PERIPHERAL
     Route: 065
     Dates: start: 19850101
  5. FUROSEMIDE [Concomitant]
     Indication: FLUID RETENTION
     Route: 065
     Dates: start: 19850101
  6. FOLIC ACID [Concomitant]
     Indication: ANAEMIA
     Route: 065
  7. HYDROCODONE [Concomitant]
     Indication: OSTEOARTHRITIS
     Route: 065
  8. ASPIRIN [Concomitant]
     Indication: CARDIOVASCULAR EVENT PROPHYLAXIS
     Route: 065
     Dates: end: 20051230
  9. LIPITOR [Concomitant]
     Route: 065

REACTIONS (31)
  - ABSCESS [None]
  - ANXIETY [None]
  - BUNION [None]
  - CATARACT [None]
  - CHOLECYSTITIS [None]
  - DENTAL CARIES [None]
  - DEPRESSION [None]
  - EDENTULOUS [None]
  - FALL [None]
  - FOOT DEFORMITY [None]
  - GALLBLADDER DISORDER [None]
  - GINGIVAL BLEEDING [None]
  - HAEMATOMA [None]
  - HYPOAESTHESIA ORAL [None]
  - IMPAIRED HEALING [None]
  - INFECTION [None]
  - MASTICATION DISORDER [None]
  - MENISCUS LESION [None]
  - MUSCULOSKELETAL DISORDER [None]
  - ORAL INFECTION [None]
  - OSTEOMYELITIS [None]
  - OSTEONECROSIS OF JAW [None]
  - PANCREATIC CARCINOMA [None]
  - PANCREATIC DISORDER [None]
  - PANCREATITIS CHRONIC [None]
  - PARAESTHESIA [None]
  - PATELLA FRACTURE [None]
  - TOOTH ABSCESS [None]
  - TOOTH DISORDER [None]
  - VEIN DISORDER [None]
  - VTH NERVE INJURY [None]
